FAERS Safety Report 10158593 (Version 3)
Quarter: 2014Q2

REPORT INFORMATION
  Report Type: Report from Study
  Country: US (occurrence: US)
  Receive Date: 20140508
  Receipt Date: 20140519
  Transmission Date: 20141212
  Serious: Yes (Hospitalization, Other)
  Sender: FDA-Public Use
  Company Number: US-ROCHE-1394106

PATIENT
  Sex: Female

DRUGS (4)
  1. LUCENTIS [Suspect]
     Indication: DIABETIC RETINAL OEDEMA
     Dosage: BOTH EYES
     Route: 050
     Dates: start: 20130903
  2. INSULIN [Concomitant]
  3. EFFEXOR [Concomitant]
  4. FESO4 [Concomitant]

REACTIONS (7)
  - Blood glucose decreased [Unknown]
  - Dialysis [Unknown]
  - Blindness [Unknown]
  - Ocular hyperaemia [Recovered/Resolved]
  - Lacrimation increased [Recovered/Resolved]
  - Eye disorder [Recovered/Resolved]
  - Eye irritation [Recovered/Resolved]
